FAERS Safety Report 8922419 (Version 1)
Quarter: 2012Q4

REPORT INFORMATION
  Report Type: 
  Country: NL (occurrence: NL)
  Receive Date: 20121123
  Receipt Date: 20121123
  Transmission Date: 20130627
  Serious: Yes (Hospitalization)
  Sender: FDA-Public Use
  Company Number: NL-B.I. PHARMACEUTICALS,INC./RIDGEFIELD-2012-BI-01150BI

PATIENT
  Age: 72 Year
  Sex: Male

DRUGS (1)
  1. PERSANTIN [Suspect]
     Indication: CARDIOVASCULAR EVENT PROPHYLAXIS
     Dosage: 400 mg
     Route: 048

REACTIONS (2)
  - Acute myocardial infarction [Unknown]
  - Anastomotic stenosis [Unknown]
